FAERS Safety Report 15438994 (Version 1)
Quarter: 2018Q3

REPORT INFORMATION
  Report Type: Spontaneous
  Country: US (occurrence: US)
  Receive Date: 20180924
  Receipt Date: 20180924
  Transmission Date: 20181010
  Serious: Yes (Hospitalization)
  Sender: FDA-Public Use
  Company Number: None

PATIENT
  Age: 81 Year
  Sex: Female
  Weight: 72.12 kg

DRUGS (10)
  1. VALSARTAN. [Suspect]
     Active Substance: VALSARTAN
     Indication: RECALLED PRODUCT
     Dosage: ?          QUANTITY:1 DF DOSAGE FORM;?
     Route: 048
     Dates: start: 20180601, end: 20180818
  2. HCTZ [Suspect]
     Active Substance: HYDROCHLOROTHIAZIDE
  3. CLONIDINE. [Concomitant]
     Active Substance: CLONIDINE
  4. ADVAIR HFA [Concomitant]
     Active Substance: FLUTICASONE PROPIONATE\SALMETEROL XINAFOATE
  5. METOPROLOL. [Concomitant]
     Active Substance: METOPROLOL
  6. ASA [Concomitant]
     Active Substance: ASPIRIN
  7. IBUSARTAN [Concomitant]
  8. SPIRIVA [Concomitant]
     Active Substance: TIOTROPIUM BROMIDE MONOHYDRATE
  9. AMLODIPINE [Concomitant]
     Active Substance: AMLODIPINE BESYLATE
  10. METFORMIN [Concomitant]
     Active Substance: METFORMIN HYDROCHLORIDE

REACTIONS (4)
  - Product use issue [None]
  - Blood sodium decreased [None]
  - Blood potassium decreased [None]
  - Blood pressure increased [None]

NARRATIVE: CASE EVENT DATE: 20180601
